FAERS Safety Report 8115343-8 (Version None)
Quarter: 2012Q1

REPORT INFORMATION
  Report Type: 
  Country: None (occurrence: None)
  Receive Date: 20120206
  Receipt Date: 20120206
  Transmission Date: 20120608
  Serious: Yes (Hospitalization)
  Sender: FDA-Public Use
  Company Number: None

PATIENT
  Sex: Female
  Weight: 113.4 kg

DRUGS (1)
  1. ROCURONIUM BROMIDE [Suspect]
     Indication: ANAESTHESIA PROCEDURE
     Dosage: 100MG -TOTAL-
     Route: 040
     Dates: start: 20120127, end: 20120127

REACTIONS (3)
  - WEANING FAILURE [None]
  - NEUROMUSCULAR BLOCK PROLONGED [None]
  - DRUG EFFECT INCREASED [None]
